FAERS Safety Report 22093155 (Version 1)
Quarter: 2023Q1

REPORT INFORMATION
  Report Type: Spontaneous
  Country: US (occurrence: None)
  Receive Date: 20230314
  Receipt Date: 20230314
  Transmission Date: 20230418
  Serious: Yes (Hospitalization)
  Sender: FDA-Public Use
  Company Number: None

PATIENT
  Age: 56 Year
  Sex: Male
  Weight: 80.74 kg

DRUGS (18)
  1. IMATINIB [Suspect]
     Active Substance: IMATINIB
     Indication: Chronic myeloid leukaemia
     Dosage: 400MG DAILY ORAL
     Route: 048
  2. ALPRAZOLAM [Concomitant]
  3. ASPIRIN [Concomitant]
     Active Substance: ASPIRIN
  4. ATORVASTTIN CALCIUM [Concomitant]
  5. CARVEDILOL [Concomitant]
  6. CINNAMON [Concomitant]
  7. CLOPIDOGREL BISULFATE [Concomitant]
  8. DULOXETINE HCI EZETIMIBE [Concomitant]
  9. FREESTYLE LITE TEST [Concomitant]
  10. JARDIANCE [Concomitant]
  11. LEVOTHYROXINE SODIUM [Concomitant]
  12. LYRICA [Concomitant]
  13. MAGNESIUM [Concomitant]
  14. NITROGLYCERIN ER [Concomitant]
  15. OMEPRAZOLE [Concomitant]
  16. PREGABALIN [Concomitant]
  17. TRESIBA FLEXTOUCH [Concomitant]
  18. ZOLPIDEM TARTRATE [Concomitant]

REACTIONS (2)
  - Hospitalisation [None]
  - Therapy interrupted [None]
